FAERS Safety Report 18624949 (Version 5)
Quarter: 2021Q1

REPORT INFORMATION
  Report Type: Spontaneous
  Country: US (occurrence: US)
  Receive Date: 20201216
  Receipt Date: 20210326
  Transmission Date: 20210419
  Serious: No
  Sender: FDA-Public Use
  Company Number: NVSC2020US331733

PATIENT
  Age: 70 Year
  Sex: Male

DRUGS (1)
  1. COSENTYX [Suspect]
     Active Substance: SECUKINUMAB
     Indication: SPINAL OSTEOARTHRITIS
     Dosage: 150 MG, QMO
     Route: 058
     Dates: start: 20190820

REACTIONS (4)
  - Product use in unapproved indication [Unknown]
  - Product leakage [Unknown]
  - Device breakage [Unknown]
  - Incorrect dose administered [Unknown]
